FAERS Safety Report 8554725-7 (Version None)
Quarter: 2012Q3

REPORT INFORMATION
  Report Type: 
  Country: None (occurrence: None)
  Receive Date: 20120731
  Receipt Date: 20120716
  Transmission Date: 20120928
  Serious: Yes (Other)
  Sender: FDA-Public Use
  Company Number: CHPA2012US015712

PATIENT
  Age: 74 Year
  Sex: Female

DRUGS (9)
  1. MULTI-VITAMINS [Concomitant]
     Dosage: UNK, UNK
  2. EXCEDRIN TENSION HEADACHE CAPLETS [Suspect]
     Indication: HEADACHE
     Dosage: 1 DF, UNK
     Route: 048
  3. EXCEDRIN TENSION HEADACHE CAPLETS [Suspect]
     Dosage: 1 DF, UNK
     Route: 048
  4. VITAMIN D [Concomitant]
     Dosage: UNK, UNK
  5. PRESERVISION /USA/ [Concomitant]
     Indication: SUPPLEMENTATION THERAPY
     Dosage: UNK, UNK
  6. CALCIUM W/MAGNESIUM [Concomitant]
     Dosage: UNK, UNK
  7. ASPIRIN [Concomitant]
     Indication: CARDIAC DISORDER
     Dosage: UNK, EVERY MORNING
  8. BIOTIN [Concomitant]
     Dosage: UNK, UNK
  9. EXCEDRIN EXTRA STRENGTH TABLETS [Suspect]
     Indication: HEADACHE
     Dosage: 2 DF, UNK
     Route: 048

REACTIONS (6)
  - SPINAL COLUMN STENOSIS [None]
  - OSTEOPOROSIS [None]
  - INTERVERTEBRAL DISC DEGENERATION [None]
  - BLOOD CHOLESTEROL ABNORMAL [None]
  - NAIL INJURY [None]
  - SCIATICA [None]
